FAERS Safety Report 22600671 (Version 1)
Quarter: 2023Q2

REPORT INFORMATION
  Report Type: Spontaneous
  Country: US (occurrence: None)
  Receive Date: 20230613
  Receipt Date: 20230613
  Transmission Date: 20230722
  Serious: Yes (Hospitalization)
  Sender: FDA-Public Use
  Company Number: None

PATIENT
  Sex: Female

DRUGS (23)
  1. LENALIDOMIDE [Suspect]
     Active Substance: LENALIDOMIDE
     Indication: Plasma cell myeloma
     Dosage: OTHER QUANTITY : 1 CAP;?FREQUENCY : DAILY;?
     Route: 048
  2. ACYCLOVIR [Concomitant]
     Active Substance: ACYCLOVIR
  3. GNP VITAMIN C [Concomitant]
  4. VITAMIN C [Concomitant]
     Active Substance: ASCORBIC ACID
  5. ASPIRIN [Concomitant]
     Active Substance: ASPIRIN
  6. VITAMIN B12 [Concomitant]
     Active Substance: CYANOCOBALAMIN
  7. DEXAMETHASONE [Concomitant]
     Active Substance: DEXAMETHASONE
  8. FLUCONAZOLE [Concomitant]
     Active Substance: FLUCONAZOLE
  9. FLUTICASONE [Concomitant]
     Active Substance: FLUTICASONE
  10. DIPHENHYDRAMINE HYDROCHLORIDE\LIDOCAINE HYDROCHLORIDE\NYSTATIN [Concomitant]
     Active Substance: DIPHENHYDRAMINE HYDROCHLORIDE\LIDOCAINE HYDROCHLORIDE\NYSTATIN
  11. MULTIVIT/FOLIC ACID KIT [Concomitant]
  12. ONDANSETRON [Concomitant]
     Active Substance: ONDANSETRON
  13. PENTAMIDINE [Concomitant]
     Active Substance: PENTAMIDINE
  14. POTASSIUM CHLORIDE [Concomitant]
     Active Substance: POTASSIUM CHLORIDE
  15. PRAMAXINE/AMMONIUM LACTATE [Concomitant]
  16. THIOCTIC ACID [Concomitant]
     Active Substance: THIOCTIC ACID
  17. ZINC [Concomitant]
     Active Substance: ZINC
  18. MONTELUKAST [Concomitant]
     Active Substance: MONTELUKAST SODIUM
  19. CICLOPIROX [Concomitant]
     Active Substance: CICLOPIROX
  20. TECLISTAMAB [Concomitant]
     Active Substance: TECLISTAMAB
  21. BACTRIM DS [Concomitant]
     Active Substance: SULFAMETHOXAZOLE\TRIMETHOPRIM
  22. PROCHLORPERAZINE [Concomitant]
     Active Substance: PROCHLORPERAZINE
  23. TENS UNITS 502 [Concomitant]

REACTIONS (1)
  - Pneumonia [None]
